FAERS Safety Report 5345237-2 (Version None)
Quarter: 2007Q2

REPORT INFORMATION
  Report Type: 
  Country: None (occurrence: None)
  Receive Date: 20070605
  Receipt Date: 20070524
  Transmission Date: 20071010
  Serious: Yes (Other)
  Sender: FDA-Public Use
  Company Number: PHEH2007US08134

PATIENT
  Age: 78 Year
  Sex: Female

DRUGS (16)
  1. HYDROCHLOROTHIAZIDE [Suspect]
  2. SUNITINIB MALATE [Suspect]
     Indication: SQUAMOUS CELL CARCINOMA
     Dates: start: 20070221
  3. DIGITEK [Concomitant]
  4. FOSAMAX [Concomitant]
  5. GLUCOSAMINE [Concomitant]
  6. MULTI-VITAMIN [Concomitant]
  7. HYDROCODONE BITARTRATE [Concomitant]
  8. ISOSORBIDE DINITRATE [Concomitant]
  9. LEVOTHYROXINE SODIUM [Concomitant]
  10. LIPITOR [Concomitant]
  11. LISINOPRIL [Concomitant]
  12. LORAZEPAM [Concomitant]
  13. PRILOSEC [Concomitant]
  14. CORTISONE ACETATE [Concomitant]
  15. OMEGA 3 [Concomitant]
  16. OSCAL [Concomitant]

REACTIONS (11)
  - ABDOMINAL PAIN [None]
  - ALANINE AMINOTRANSFERASE INCREASED [None]
  - ASPARTATE AMINOTRANSFERASE INCREASED [None]
  - BLOOD BILIRUBIN INCREASED [None]
  - BLOOD CHLORIDE DECREASED [None]
  - BLOOD GLUCOSE INCREASED [None]
  - BLOOD SODIUM DECREASED [None]
  - CHOLECYSTITIS [None]
  - CHOLELITHIASIS [None]
  - FATIGUE [None]
  - VOMITING [None]
